FAERS Safety Report 26040888 (Version 2)
Quarter: 2025Q4

REPORT INFORMATION
  Report Type: Spontaneous
  Country: US (occurrence: US)
  Receive Date: 20251113
  Receipt Date: 20251115
  Transmission Date: 20260118
  Serious: No
  Sender: ABBVIE
  Company Number: US-ABBVIE-6540833

PATIENT
  Age: 59 Year
  Sex: Male

DRUGS (2)
  1. FOSCARBIDOPA\FOSLEVODOPA [Suspect]
     Active Substance: FOSCARBIDOPA\FOSLEVODOPA
     Indication: Parkinson^s disease
     Dosage: BASE: 0.44 ML/H HIGH: 0.47 ML/H NIGHTTIME: 0.29 ML/H
     Route: 058
     Dates: start: 202505
  2. ROTIGOTINE [Concomitant]
     Active Substance: ROTIGOTINE
     Indication: Product used for unknown indication
     Dosage: PATCH

REACTIONS (5)
  - Malaise [Unknown]
  - Infusion site erythema [Unknown]
  - Infusion site warmth [Unknown]
  - Infusion site swelling [Unknown]
  - Infusion site pain [Unknown]

NARRATIVE: CASE EVENT DATE: 20250101
